FAERS Safety Report 7162319-3 (Version None)
Quarter: 2010Q4

REPORT INFORMATION
  Report Type: 
  Country: None (occurrence: None)
  Receive Date: 20101215
  Receipt Date: 20091005
  Transmission Date: 20110411
  Serious: Yes (Other)
  Sender: FDA-Public Use
  Company Number: SE-PFIZER INC-2009264955

PATIENT
  Age: 50 Year

DRUGS (2)
  1. LYRICA [Suspect]
     Indication: GENERALISED ANXIETY DISORDER
     Dosage: 300 MG, 1X/DAY
     Dates: start: 20090801, end: 20090801
  2. LYRICA [Suspect]
     Dosage: 150 MG, 1X/DAY
     Dates: start: 20090801, end: 20090801

REACTIONS (2)
  - EPILEPSY [None]
  - SYNCOPE [None]
